FAERS Safety Report 12817570 (Version 3)
Quarter: 2017Q1

REPORT INFORMATION
  Report Type: Spontaneous
  Country: CA (occurrence: CA)
  Receive Date: 20161006
  Receipt Date: 20170328
  Transmission Date: 20170428
  Serious: Yes (Other)
  Sender: FDA-Public Use
  Company Number: CA-AMGEN-CANSP2016134065

PATIENT
  Age: 68 Year
  Sex: Female

DRUGS (23)
  1. VALSARTAN. [Concomitant]
     Active Substance: VALSARTAN
     Dosage: 160 MG, UNK
  2. BASAGLAR [Concomitant]
     Active Substance: INSULIN GLARGINE
     Dosage: 10 UNITS, QD
  3. CRANBERRY. [Concomitant]
     Active Substance: CRANBERRY
     Dosage: UNK UNK, (1 DAILY) QD
  4. ACLASTA [Concomitant]
     Active Substance: ZOLEDRONIC ACID
     Dosage: 5 MG, YEARLY
     Route: 042
     Dates: start: 20111118
  5. RESTORALAX [Concomitant]
     Active Substance: POLYETHYLENE GLYCOL 3350
     Dosage: UNK
  6. PREDNISONE. [Concomitant]
     Active Substance: PREDNISONE
     Dosage: 5 MG, BID
  7. ENBREL [Suspect]
     Active Substance: ETANERCEPT
     Indication: RHEUMATOID ARTHRITIS
     Dosage: 50 MG, QWK
     Route: 065
     Dates: start: 200306, end: 2016
  8. LEFLUNOMIDE. [Suspect]
     Active Substance: LEFLUNOMIDE
     Indication: RHEUMATOID ARTHRITIS
     Dosage: 20 MG, QD
     Route: 065
     Dates: start: 2006
  9. SYNTHROID [Concomitant]
     Active Substance: LEVOTHYROXINE SODIUM
     Dosage: 0.25 MG, QD
     Dates: start: 20100630
  10. NOVO-METOPROL [Concomitant]
     Active Substance: METOPROLOL TARTRATE
     Dosage: 100 MG, BID
  11. DIOVAN HCT [Concomitant]
     Active Substance: HYDROCHLOROTHIAZIDE\VALSARTAN
     Dosage: 12.5 MG, QD
  12. TRAJENTA [Concomitant]
     Active Substance: LINAGLIPTIN
     Dosage: 5 MG, QD
  13. COQ10 [Concomitant]
     Active Substance: UBIDECARENONE
     Dosage: 200 MG, QD
  14. VITAMIN D [Concomitant]
     Active Substance: CHOLECALCIFEROL
     Dosage: 1000 (UNIT NOT PROVIDED), TID
  15. METHOTREXATE SODIUM. [Suspect]
     Active Substance: METHOTREXATE SODIUM
     Indication: RHEUMATOID ARTHRITIS
     Dosage: 20 MG, QWK
     Route: 065
     Dates: start: 2004
  16. PMS-OXYCODONE [Concomitant]
     Active Substance: OXYCODONE HYDROCHLORIDE
     Dosage: 5 MG 1-2 TABLETS EVERY 3 HOURS
  17. REPAGLINIDE ACTAVIS [Concomitant]
     Active Substance: REPAGLINIDE
     Dosage: 0.5 MG, TID
     Dates: start: 20160826
  18. CYMBALTA [Concomitant]
     Active Substance: DULOXETINE HYDROCHLORIDE
     Dosage: 90 MG, QD
  19. ADALAT CC [Concomitant]
     Active Substance: NIFEDIPINE
     Dosage: 30 MG, QD
  20. TYLENOL EXTRA STRENGTH [Concomitant]
     Active Substance: ACETAMINOPHEN
     Dosage: 6-8 DAILY MAXIMUM 2 AT ONE TIME
  21. PANTOPRAZOLE [Concomitant]
     Active Substance: PANTOPRAZOLE SODIUM
     Dosage: 40 MG, BID
  22. COLACE [Concomitant]
     Active Substance: DOCUSATE SODIUM
     Indication: ABNORMAL FAECES
     Dosage: 100 MG, UNK
  23. ASPIRIN. [Concomitant]
     Active Substance: ASPIRIN
     Dosage: 81 MG, QD

REACTIONS (15)
  - Surgery [Unknown]
  - Drug ineffective [Not Recovered/Not Resolved]
  - Arthralgia [Unknown]
  - Hepatic enzyme increased [Not Recovered/Not Resolved]
  - Urinary tract infection [Unknown]
  - Eye operation [Unknown]
  - Drug intolerance [Not Recovered/Not Resolved]
  - Skin disorder [Not Recovered/Not Resolved]
  - Investigation abnormal [Unknown]
  - Joint swelling [Unknown]
  - Arthropathy [Unknown]
  - Post procedural infection [Unknown]
  - Breast cancer [Unknown]
  - Knee operation [Unknown]
  - Drug effect decreased [Unknown]

NARRATIVE: CASE EVENT DATE: 200506
